FAERS Safety Report 8817105 (Version 1)
Quarter: 2012Q4

REPORT INFORMATION
  Report Type: Spontaneous
  Country: US (occurrence: None)
  Receive Date: 20121003
  Receipt Date: 20121003
  Transmission Date: 20130627
  Serious: Yes (Hospitalization)
  Sender: FDA-Public Use
  Company Number: None

PATIENT
  Age: 28 Year
  Sex: Female
  Weight: 83.92 kg

DRUGS (2)
  1. CIPRO [Suspect]
     Indication: UTI
     Dates: start: 20120701, end: 20120710
  2. CIPRO [Suspect]
     Indication: UTI
     Dates: start: 20120915, end: 20120930

REACTIONS (10)
  - Back pain [None]
  - Musculoskeletal stiffness [None]
  - Arthralgia [None]
  - Panic attack [None]
  - Hallucination [None]
  - Muscular weakness [None]
  - Sensation of heaviness [None]
  - Toxicity to various agents [None]
  - Abdominal pain [None]
  - Colitis [None]
